FAERS Safety Report 17840024 (Version 1)
Quarter: 2020Q2

REPORT INFORMATION
  Report Type: Spontaneous
  Country: US (occurrence: US)
  Receive Date: 20200529
  Receipt Date: 20200529
  Transmission Date: 20200714
  Serious: No
  Sender: FDA-Public Use
  Company Number: US-ACCORD-132841

PATIENT
  Age: 47 Year
  Sex: Female
  Weight: 52.27 kg

DRUGS (2)
  1. CORLANOR [Concomitant]
     Active Substance: IVABRADINE HYDROCHLORIDE
     Dosage: BID
  2. CLONAZEPAM ACCORD [Suspect]
     Active Substance: CLONAZEPAM
     Indication: SUPRAVENTRICULAR TACHYCARDIA
     Dosage: STRENGTH: 1 MG, QD WITH 1 MG AS NEEDED
     Route: 048
     Dates: start: 20190609

REACTIONS (2)
  - Drug ineffective [Unknown]
  - Off label use [Unknown]

NARRATIVE: CASE EVENT DATE: 20190609
